FAERS Safety Report 19281405 (Version 3)
Quarter: 2021Q3

REPORT INFORMATION
  Report Type: Spontaneous
  Country: GB (occurrence: GB)
  Receive Date: 20210521
  Receipt Date: 20210712
  Transmission Date: 20211014
  Serious: Yes (Other)
  Sender: FDA-Public Use
  Company Number: GB-ADDMEDICA-2021000040

PATIENT
  Age: 68 Year
  Sex: Female

DRUGS (8)
  1. SERTRALINE [Suspect]
     Active Substance: SERTRALINE HYDROCHLORIDE
  2. LACTULOSE. [Suspect]
     Active Substance: LACTULOSE
  3. ASPIRIN. [Suspect]
     Active Substance: ASPIRIN
     Route: 065
  4. ZOPICLONE [Suspect]
     Active Substance: ZOPICLONE
  5. HYDROXYCARBAMIDE [Suspect]
     Active Substance: HYDROXYUREA
     Route: 065
  6. ARIPIPRAZOLE. [Suspect]
     Active Substance: ARIPIPRAZOLE
  7. CLOZARIL [Suspect]
     Active Substance: CLOZAPINE
     Route: 048
     Dates: start: 20100602
  8. ATORVASTATIN [Suspect]
     Active Substance: ATORVASTATIN
     Route: 065

REACTIONS (2)
  - Haemoglobin increased [Not Recovered/Not Resolved]
  - Haematocrit increased [Not Recovered/Not Resolved]

NARRATIVE: CASE EVENT DATE: 20201223
